FAERS Safety Report 11012491 (Version 1)
Quarter: 2015Q2

REPORT INFORMATION
  Report Type: Spontaneous
  Country: US (occurrence: None)
  Receive Date: 20150407
  Receipt Date: 20150407
  Transmission Date: 20150821
  Serious: Yes (Hospitalization, Other)
  Sender: FDA-Public Use
  Company Number: LH201400378

PATIENT
  Age: 40 Year
  Sex: Female

DRUGS (1)
  1. MAKENA [Suspect]
     Active Substance: HYDROXYPROGESTERONE CAPROATE
     Indication: PREMATURE DELIVERY
     Route: 030
     Dates: start: 20140709, end: 20141021

REACTIONS (4)
  - Premature labour [None]
  - Premature rupture of membranes [None]
  - Premature delivery [None]
  - Cervical incompetence [None]

NARRATIVE: CASE EVENT DATE: 2014
